FAERS Safety Report 17034509 (Version 1)
Quarter: 2019Q4

REPORT INFORMATION
  Report Type: Spontaneous
  Country: US (occurrence: US)
  Receive Date: 20191115
  Receipt Date: 20191115
  Transmission Date: 20200122
  Serious: Yes (Other)
  Sender: FDA-Public Use
  Company Number: US-ROCHE-2462846

PATIENT
  Sex: Male

DRUGS (1)
  1. ESBRIET [Suspect]
     Active Substance: PIRFENIDONE
     Indication: IDIOPATHIC PULMONARY FIBROSIS
     Route: 048
     Dates: start: 20190721

REACTIONS (4)
  - Rectal haemorrhage [Recovered/Resolved]
  - Decreased appetite [Not Recovered/Not Resolved]
  - Haemorrhoids [Recovered/Resolved]
  - Nausea [Recovered/Resolved]
